FAERS Safety Report 9986601 (Version 2)
Quarter: 2014Q2

REPORT INFORMATION
  Report Type: Spontaneous
  Country: IT (occurrence: IT)
  Receive Date: 20140307
  Receipt Date: 20140403
  Transmission Date: 20141212
  Serious: Yes (Other)
  Sender: FDA-Public Use
  Company Number: IT-ACTAVIS-2014-03892

PATIENT
  Age: 81 Year
  Sex: Female
  Weight: 72 kg

DRUGS (4)
  1. PACLITAXEL (UNKNOWN) [Suspect]
     Indication: OVARIAN CANCER
     Dosage: 300 MG, CYCLICAL
     Route: 042
     Dates: start: 20140127, end: 20140217
  2. CARBOPLATIN TEVA [Suspect]
     Indication: OVARIAN CANCER
     Dosage: 440 MG, CYCLICAL
     Route: 042
     Dates: start: 20140127, end: 20140217
  3. CIPRALEX [Concomitant]
     Indication: BLUNTED AFFECT
     Dosage: 10 MG, UNK
     Route: 065
  4. TOTALIP [Concomitant]
     Indication: HYPERCHOLESTEROLAEMIA
     Dosage: 10 MG, UNK
     Route: 065

REACTIONS (3)
  - Neutropenia [Recovered/Resolved]
  - Anaemia [Recovered/Resolved]
  - Leukopenia [Recovered/Resolved]
